FAERS Safety Report 9227166 (Version 1)
Quarter: 2013Q2

REPORT INFORMATION
  Report Type: Spontaneous
  Country: US (occurrence: None)
  Receive Date: 20130411
  Receipt Date: 20130411
  Transmission Date: 20140414
  Serious: Yes (Other)
  Sender: FDA-Public Use
  Company Number: None

PATIENT
  Age: 55 Year
  Sex: Female
  Weight: 52.16 kg

DRUGS (2)
  1. GAMUNEX-C [Suspect]
     Indication: IMMUNODEFICIENCY
     Dosage: GAMUNEX C MONTHLY IV DRIP
     Route: 041
     Dates: start: 20121001, end: 20130402
  2. INFUSION [Concomitant]

REACTIONS (4)
  - Nausea [None]
  - Chills [None]
  - Flushing [None]
  - Infusion related reaction [None]
